FAERS Safety Report 17686733 (Version 3)
Quarter: 2021Q1

REPORT INFORMATION
  Report Type: Spontaneous
  Country: US (occurrence: US)
  Receive Date: 20200421
  Receipt Date: 20210129
  Transmission Date: 20210419
  Serious: Yes (Hospitalization, Other)
  Sender: FDA-Public Use
  Company Number: US-ASTRAZENECA-2020SE51301

PATIENT
  Age: 26127 Day
  Sex: Male
  Weight: 59 kg

DRUGS (44)
  1. LIDOCAINE. [Concomitant]
     Active Substance: LIDOCAINE
  2. POLYETHYLENE [Concomitant]
     Active Substance: HIGH DENSITY POLYETHYLENE
  3. MYDFRIN [Concomitant]
     Active Substance: PHENYLEPHRINE HYDROCHLORIDE
  4. DESYREL [Concomitant]
     Active Substance: TRAZODONE HYDROCHLORIDE
  5. TAMSULOSIN [Concomitant]
     Active Substance: TAMSULOSIN
  6. MAXITROL [Concomitant]
     Active Substance: DEXAMETHASONE\NEOMYCIN SULFATE\POLYMYXIN B SULFATE
  7. MIRALAX [Concomitant]
     Active Substance: POLYETHYLENE GLYCOL 3350
  8. TYLENOL [Concomitant]
     Active Substance: ACETAMINOPHEN
     Indication: PAIN
  9. DULCOLAX NOS [Concomitant]
     Active Substance: BISACODYL OR DOCUSATE SODIUM
  10. PREVACID [Suspect]
     Active Substance: LANSOPRAZOLE
     Indication: GASTROOESOPHAGEAL REFLUX DISEASE
     Route: 065
     Dates: start: 201606, end: 201703
  11. PREVACID [Suspect]
     Active Substance: LANSOPRAZOLE
     Indication: GASTROOESOPHAGEAL REFLUX DISEASE
     Route: 065
     Dates: start: 2016, end: 2017
  12. PREVACID IV [Suspect]
     Active Substance: LANSOPRAZOLE
     Route: 065
     Dates: start: 201606, end: 201703
  13. AMLODIPINE [Concomitant]
     Active Substance: AMLODIPINE BESYLATE
  14. CHOLECALCIFEROL [Concomitant]
     Active Substance: CHOLECALCIFEROL
  15. AXID AR [Concomitant]
     Active Substance: NIZATIDINE
  16. BENADRYL [Concomitant]
     Active Substance: DIPHENHYDRAMINE HYDROCHLORIDE
  17. FAMOTIDINE. [Concomitant]
     Active Substance: FAMOTIDINE
  18. KENALOG?40 [Concomitant]
     Active Substance: TRIAMCINOLONE ACETONIDE
  19. ZOFRAN [Concomitant]
     Active Substance: ONDANSETRON HYDROCHLORIDE
  20. CARDIOLITE [Concomitant]
     Active Substance: TECHNETIUM TC-99M SESTAMIBI
  21. LEXISCAN [Concomitant]
     Active Substance: REGADENOSON
  22. ATORVASTIN [Concomitant]
     Active Substance: ATORVASTATIN
  23. CALCIUM ACETATE. [Concomitant]
     Active Substance: CALCIUM ACETATE
  24. FINASTERIDE. [Concomitant]
     Active Substance: FINASTERIDE
  25. ZANTAC [Concomitant]
     Active Substance: RANITIDINE HYDROCHLORIDE
  26. DUONEB [Concomitant]
     Active Substance: ALBUTEROL SULFATE\IPRATROPIUM BROMIDE
  27. CYCLOPENTOLATE. [Concomitant]
     Active Substance: CYCLOPENTOLATE
  28. APRESOLINE HYDROCHLORIDE [Concomitant]
     Active Substance: HYDRALAZINE HYDROCHLORIDE
  29. PREVACID 24 HR [Suspect]
     Active Substance: LANSOPRAZOLE
     Route: 065
     Dates: start: 201606, end: 201703
  30. PEPCID AC [Concomitant]
     Active Substance: FAMOTIDINE
  31. PONTOCAINE [Concomitant]
     Active Substance: TETRACAINE HYDROCHLORIDE
  32. VITRASE [Concomitant]
     Active Substance: HYALURONIDASE, OVINE
  33. ZEBETA [Concomitant]
     Active Substance: BISOPROLOL FUMARATE
  34. HUMALOG [Concomitant]
     Active Substance: INSULIN LISPRO
  35. IMDUR [Concomitant]
     Active Substance: ISOSORBIDE MONONITRATE
  36. PRILOSEC [Suspect]
     Active Substance: OMEPRAZOLE MAGNESIUM
     Indication: GASTROOESOPHAGEAL REFLUX DISEASE
     Route: 048
     Dates: start: 201606, end: 201703
  37. PRILOSEC [Suspect]
     Active Substance: OMEPRAZOLE MAGNESIUM
     Indication: GASTROOESOPHAGEAL REFLUX DISEASE
     Route: 048
     Dates: start: 2016, end: 2017
  38. DOCUSATE SODIUM. [Concomitant]
     Active Substance: DOCUSATE SODIUM
  39. PRILOCAINE [Concomitant]
     Active Substance: PRILOCAINE
  40. MILK OF MAGNESIA [Concomitant]
     Active Substance: MAGNESIUM HYDROXIDE
  41. XYLOCAINE [Concomitant]
     Active Substance: LIDOCAINE HYDROCHLORIDE
  42. NORVASC [Concomitant]
     Active Substance: AMLODIPINE BESYLATE
  43. PROTONIX [Concomitant]
     Active Substance: PANTOPRAZOLE SODIUM
  44. PROSCAR [Concomitant]
     Active Substance: FINASTERIDE

REACTIONS (3)
  - Chronic kidney disease [Not Recovered/Not Resolved]
  - Renal failure [Unknown]
  - End stage renal disease [Unknown]

NARRATIVE: CASE EVENT DATE: 20170804
